FAERS Safety Report 7979170-4 (Version None)
Quarter: 2011Q4

REPORT INFORMATION
  Report Type: 
  Country: None (occurrence: None)
  Receive Date: 20111213
  Receipt Date: 20111213
  Transmission Date: 20120403
  Serious: Yes (Hospitalization)
  Sender: FDA-Public Use
  Company Number: None

PATIENT
  Sex: Female
  Weight: 46.3 kg

DRUGS (18)
  1. BERINERT [Suspect]
     Indication: PROPHYLAXIS AGAINST TRANSPLANT REJECTION
     Dosage: 1000 UNITS TWICE WEEKLY X 8 IV
     Route: 042
     Dates: start: 20111202
  2. BERINERT [Suspect]
     Indication: PROPHYLAXIS AGAINST TRANSPLANT REJECTION
     Dosage: 1000 UNITS TWICE WEEKLY X 8 IV
     Route: 042
     Dates: start: 20111204
  3. BERINERT [Suspect]
     Indication: PROPHYLAXIS AGAINST TRANSPLANT REJECTION
     Dosage: 1000 UNITS TWICE WEEKLY X 8 IV
     Route: 042
     Dates: start: 20111206
  4. FLUCONAZOLE [Concomitant]
  5. VALCYTE [Concomitant]
  6. PREDNISONE [Concomitant]
  7. BACTRIM [Concomitant]
  8. PHOS-NAK [Concomitant]
  9. NIFEDIPINE [Concomitant]
  10. PRILOSEC [Concomitant]
  11. CIPROFLOXACIN [Concomitant]
  12. COLACE [Concomitant]
  13. PROGRAF [Concomitant]
  14. CELLCEPT [Suspect]
     Indication: PROPHYLAXIS AGAINST TRANSPLANT REJECTION
     Dosage: 1000 MG BID PO
     Route: 048
     Dates: start: 20111202
  15. LABETALOL HCL [Concomitant]
  16. NORCO [Concomitant]
  17. CLONIDINE [Concomitant]
  18. MYCOPHENOLATE MOFETIL (CELLCEPT) [Concomitant]

REACTIONS (4)
  - HYPERKALAEMIA [None]
  - ASTHENIA [None]
  - HYPOTENSION [None]
  - DYSPNOEA [None]
